FAERS Safety Report 8910203 (Version 1)
Quarter: 2012Q4

REPORT INFORMATION
  Report Type: 
  Country: US (occurrence: US)
  Receive Date: 20121114
  Receipt Date: 20121114
  Transmission Date: 20130627
  Serious: Yes (Death, Life-Threatening, Disabling)
  Sender: FDA-Public Use
  Company Number: US-GILEAD-2012-0064393

PATIENT
  Age: 28 Year
  Sex: Female

DRUGS (2)
  1. LETAIRIS [Suspect]
     Indication: PULMONARY HYPERTENSION
     Dosage: 5 mg, QD
     Route: 048
     Dates: start: 20121009, end: 20121029
  2. AMIODARONE [Suspect]

REACTIONS (2)
  - Toxicity to various agents [Fatal]
  - Pulmonary hypertension [Fatal]
